FAERS Safety Report 7446129-5 (Version None)
Quarter: 2011Q2

REPORT INFORMATION
  Report Type: 
  Country: None (occurrence: None)
  Receive Date: 20110429
  Receipt Date: 20110420
  Transmission Date: 20111010
  Serious: Yes (Other)
  Sender: FDA-Public Use
  Company Number: A0924826A

PATIENT
  Sex: Male

DRUGS (1)
  1. PROMACTA [Suspect]
     Dosage: 25MG PER DAY
     Dates: end: 20100401

REACTIONS (1)
  - THROMBOCYTOPENIA [None]
